FAERS Safety Report 21997445 (Version 2)
Quarter: 2023Q1

REPORT INFORMATION
  Report Type: Spontaneous
  Country: IE (occurrence: IE)
  Receive Date: 20230216
  Receipt Date: 20230224
  Transmission Date: 20230418
  Serious: Yes (Life-Threatening, Hospitalization)
  Sender: FDA-Public Use
  Company Number: IE-TEVA-2023-IE-2855857

PATIENT
  Sex: Female

DRUGS (7)
  1. DULOXETINE [Suspect]
     Active Substance: DULOXETINE
     Indication: Fibromyalgia
     Dosage: 60 MILLIGRAM DAILY;
     Route: 064
  2. FENTANYL [Suspect]
     Active Substance: FENTANYL
     Indication: Dyskinesia
     Route: 065
  3. ATROPINE [Suspect]
     Active Substance: ATROPINE
     Indication: Dyskinesia
     Dosage: NO.OF SEPARATE DOSAGES?1
     Route: 065
  4. SUCCINYLCHOLINE [Suspect]
     Active Substance: SUCCINYLCHOLINE
     Indication: Dyskinesia
     Dosage: NO.OF SEPARATE DOSAGES?1
     Route: 065
  5. LORAZEPAM [Suspect]
     Active Substance: LORAZEPAM
     Indication: Dyskinesia
     Dosage: TWO DOSES, NO.OF SEPARATE DOSAGES?1
     Route: 065
  6. PHENOBARBITAL [Suspect]
     Active Substance: PHENOBARBITAL
     Indication: Dyskinesia
     Dosage: TWO DOSES, NO.OF SEPARATE DOSAGES?1
     Route: 065
  7. LEVETIRACETAM [Suspect]
     Active Substance: LEVETIRACETAM
     Indication: Dyskinesia
     Dosage: TWO DOSES, NO.OF SEPARATE DOSAGES?1
     Route: 065

REACTIONS (5)
  - Respiratory failure [Unknown]
  - Dyskinesia [Unknown]
  - Apnoea [Unknown]
  - Drug ineffective [Unknown]
  - Foetal exposure during pregnancy [Unknown]
